FAERS Safety Report 4974333-4 (Version None)
Quarter: 2006Q2

REPORT INFORMATION
  Report Type: 
  Country: None (occurrence: None)
  Receive Date: 20060417
  Receipt Date: 20060406
  Transmission Date: 20061013
  Serious: Yes (Hospitalization)
  Sender: FDA-Public Use
  Company Number: JP-JNJFOC-20040905780

PATIENT
  Sex: Female
  Weight: 33 kg

DRUGS (17)
  1. REMICADE [Suspect]
     Route: 042
  2. REMICADE [Suspect]
     Route: 042
  3. REMICADE [Suspect]
     Route: 042
  4. REMICADE [Suspect]
     Route: 042
  5. REMICADE [Suspect]
     Route: 042
  6. REMICADE [Suspect]
     Indication: RHEUMATOID ARTHRITIS
     Route: 042
  7. RHEUMATREX [Suspect]
     Route: 048
  8. RHEUMATREX [Suspect]
     Indication: RHEUMATOID ARTHRITIS
     Route: 048
  9. PREDONINE [Suspect]
     Indication: RHEUMATOID ARTHRITIS
     Route: 048
  10. LOXONIN [Concomitant]
     Indication: RHEUMATOID ARTHRITIS
     Dosage: DAILY DOSE = 3 TAB
     Route: 048
  11. BASEN [Concomitant]
     Dosage: 0.3
     Route: 048
  12. MUCODYNE [Concomitant]
     Dosage: 3 TABLETS DAILY
     Route: 048
  13. ALFAROL [Concomitant]
     Dosage: DAILY DOSE 0.75RG
     Route: 048
  14. GASTOR [Concomitant]
     Route: 048
  15. CLARITHROMYCIN [Concomitant]
     Dosage: 1 TABLET DAILY
     Route: 048
  16. CALCIUM LACTATE [Concomitant]
     Route: 048
  17. KEISHI KARYO NINJIN BUTO [Concomitant]
     Route: 048

REACTIONS (4)
  - ABSCESS [None]
  - ENTEROCOCCAL INFECTION [None]
  - HERPES ZOSTER [None]
  - PNEUMONIA [None]
